FAERS Safety Report 6644251-4 (Version None)
Quarter: 2010Q1

REPORT INFORMATION
  Report Type: 
  Country: None (occurrence: None)
  Receive Date: 20100319
  Receipt Date: 20100319
  Transmission Date: 20100710
  Serious: Yes (Other)
  Sender: FDA-Public Use
  Company Number: None

PATIENT
  Age: 52 Year
  Sex: Male
  Weight: 129.9102 kg

DRUGS (1)
  1. ERBITUX [Suspect]
     Indication: METASTATIC GASTRIC CANCER
     Dosage: 1004 MG Q WEEK IV
     Route: 042
     Dates: start: 20100318

REACTIONS (3)
  - PRURITUS [None]
  - RASH [None]
  - THROAT TIGHTNESS [None]
